FAERS Safety Report 6361022-7 (Version None)
Quarter: 2009Q3

REPORT INFORMATION
  Report Type: 
  Country: None (occurrence: None)
  Receive Date: 20090918
  Receipt Date: 20090909
  Transmission Date: 20100115
  Serious: Yes (Other)
  Sender: FDA-Public Use
  Company Number: CA-JNJFOC-20090903832

PATIENT
  Sex: Male
  Weight: 67.3 kg

DRUGS (3)
  1. REMICADE [Suspect]
     Dosage: TOTAL OF 5 DOSES
     Route: 042
     Dates: start: 20090209, end: 20090714
  2. REMICADE [Suspect]
     Indication: CROHN'S DISEASE
     Route: 042
     Dates: start: 20090209, end: 20090714
  3. SOLU-CORTEF [Concomitant]
     Indication: PREMEDICATION

REACTIONS (2)
  - DIPLEGIA [None]
  - JOINT LOCK [None]
